FAERS Safety Report 8562493 (Version 3)
Quarter: 2013Q2

REPORT INFORMATION
  Report Type: Spontaneous
  Country: US (occurrence: US)
  Receive Date: 20120515
  Receipt Date: 20130408
  Transmission Date: 20140414
  Serious: Yes (Other)
  Sender: FDA-Public Use
  Company Number: US-PFIZER INC-2012115408

PATIENT
  Age: 34 Year
  Sex: Female
  Weight: 90.7 kg

DRUGS (15)
  1. ATENOLOL [Suspect]
     Dosage: 150 MG, UNK
     Route: 048
  2. INDERAL [Suspect]
     Indication: HEART RATE INCREASED
     Dosage: UNK
     Route: 065
  3. SEROQUEL [Suspect]
     Indication: BIPOLAR I DISORDER
     Dosage: 200 MG AT BED TIME
     Route: 048
     Dates: start: 1998
  4. XANAX [Concomitant]
     Indication: PANIC ATTACK
     Dosage: 2 MG, 2X/DAY
  5. XANAX [Concomitant]
     Indication: ANXIETY
  6. LYRICA [Concomitant]
     Dosage: UNK
     Route: 065
     Dates: start: 2006
  7. ELAVIL [Concomitant]
     Dosage: UNK
     Route: 065
  8. AMBIEN [Concomitant]
     Dosage: UNK
     Route: 065
  9. MAXZIDE [Concomitant]
     Dosage: UNK
     Route: 065
  10. MAGNESIUM [Concomitant]
     Dosage: UNK
     Route: 065
  11. ALBUTEROL [Concomitant]
     Dosage: UNK
     Route: 065
  12. ADVAIR [Concomitant]
     Indication: ASTHMA
     Dosage: UNK
     Route: 065
  13. VOLTAREN [Concomitant]
     Indication: ARTHRALGIA
     Dosage: UNK
     Route: 065
  14. VOLTAREN [Concomitant]
     Indication: BACK PAIN
  15. ATENOLOL [Suspect]
     Indication: MYOCARDIAL INFARCTION
     Dosage: 100 MG AT BED TIME
     Route: 048

REACTIONS (29)
  - Myocardial infarction [Recovered/Resolved]
  - Pharyngitis streptococcal [Unknown]
  - Ventricular tachycardia [Unknown]
  - Tunnel vision [Unknown]
  - Pneumonia [Unknown]
  - Weight fluctuation [Unknown]
  - Stress [Unknown]
  - Panic attack [Unknown]
  - Cardiac disorder [Unknown]
  - Activities of daily living impaired [Unknown]
  - Sinus tachycardia [Unknown]
  - Speech disorder [Unknown]
  - Cold sweat [Unknown]
  - Chest pain [Unknown]
  - Social avoidant behaviour [Unknown]
  - Oedema peripheral [Unknown]
  - Oedema peripheral [Unknown]
  - Oedema peripheral [Unknown]
  - Alopecia [Unknown]
  - Emotional disorder [Unknown]
  - Memory impairment [Unknown]
  - Crying [Unknown]
  - Fatigue [Unknown]
  - Affect lability [Unknown]
  - Hypoaesthesia [Unknown]
  - Dizziness [Unknown]
  - Depression [Unknown]
  - Anxiety [Unknown]
  - Intentional drug misuse [Unknown]
